FAERS Safety Report 5008238-X (Version None)
Quarter: 2006Q2

REPORT INFORMATION
  Report Type: 
  Country: None (occurrence: None)
  Receive Date: 20060523
  Receipt Date: 20060503
  Transmission Date: 20061013
  Serious: Yes (Hospitalization)
  Sender: FDA-Public Use
  Company Number: 2006CG00793

PATIENT
  Age: 93 Year
  Sex: Female

DRUGS (6)
  1. NEXIUM [Suspect]
     Indication: DUODENAL ULCER
     Route: 048
     Dates: start: 20060331
  2. NEXIUM [Suspect]
     Indication: HELICOBACTER INFECTION
     Route: 048
     Dates: start: 20060331
  3. CLAMOXYL [Suspect]
     Indication: DUODENAL ULCER
     Route: 048
     Dates: start: 20060331, end: 20060407
  4. CLAMOXYL [Suspect]
     Indication: HELICOBACTER INFECTION
     Route: 048
     Dates: start: 20060331, end: 20060407
  5. ZECLAR [Suspect]
     Indication: DUODENAL ULCER
     Route: 048
     Dates: start: 20060331, end: 20060407
  6. ZECLAR [Suspect]
     Indication: HELICOBACTER INFECTION
     Route: 048
     Dates: start: 20060331, end: 20060407

REACTIONS (3)
  - DYSPNOEA [None]
  - GENERALISED OEDEMA [None]
  - TOXIC SKIN ERUPTION [None]
